FAERS Safety Report 20523338 (Version 1)
Quarter: 2022Q1

REPORT INFORMATION
  Report Type: Spontaneous
  Country: FR (occurrence: FR)
  Receive Date: 20220227
  Receipt Date: 20220227
  Transmission Date: 20220423
  Serious: Yes (Other)
  Sender: FDA-Public Use
  Company Number: FR-AFSSAPS-MP20220524

PATIENT
  Age: 33 Year
  Sex: Male
  Weight: 65 kg

DRUGS (4)
  1. TRAMADOL [Suspect]
     Active Substance: TRAMADOL
     Indication: Lower limb fracture
     Dosage: 400 MILLIGRAM, ONCE A DAY(ABOUT 400 MG/DAY)
     Route: 048
     Dates: start: 20211201
  2. LIORESAL [Suspect]
     Active Substance: BACLOFEN
     Indication: Alcoholism
     Dosage: 160 MILLIGRAM, ONCE A DAY(160MG PER DAY)
     Route: 048
     Dates: start: 20211001
  3. OXAZEPAM [Suspect]
     Active Substance: OXAZEPAM
     Indication: Anxiety
     Dosage: 10 MILLIGRAM
     Route: 048
  4. PROPRANOLOL [Concomitant]
     Active Substance: PROPRANOLOL HYDROCHLORIDE
     Indication: Tremor
     Dosage: 80 MILLIGRAM, TWO TIMES A DAY(80 MG MORNING AND EVENING)
     Route: 048

REACTIONS (1)
  - Generalised tonic-clonic seizure [Recovered/Resolved]

NARRATIVE: CASE EVENT DATE: 20211225
